FAERS Safety Report 11580020 (Version 1)
Quarter: 2015Q3

REPORT INFORMATION
  Report Type: Spontaneous
  Country: US (occurrence: US)
  Receive Date: 20150916
  Receipt Date: 20150916
  Transmission Date: 20151125
  Serious: No
  Sender: FDA-Public Use
  Company Number: US-ELI_LILLY_AND_COMPANY-US200805001291

PATIENT
  Sex: Female

DRUGS (8)
  1. VITAMIN B12 [Concomitant]
     Active Substance: CYANOCOBALAMIN
  2. ALBUTEROL. [Concomitant]
     Active Substance: ALBUTEROL
  3. MOTRIN [Concomitant]
     Active Substance: IBUPROFEN
  4. HYDROCODONE [Concomitant]
     Active Substance: HYDROCODONE
  5. FORTEO [Suspect]
     Active Substance: TERIPARATIDE
     Dosage: UNK, UNK
     Dates: start: 200802
  6. ADVAIR HFA [Concomitant]
     Active Substance: FLUTICASONE PROPIONATE\SALMETEROL XINAFOATE
  7. FOLIC ACID. [Concomitant]
     Active Substance: FOLIC ACID
  8. MAGNESIUM [Concomitant]
     Active Substance: MAGNESIUM

REACTIONS (3)
  - Peripheral swelling [Not Recovered/Not Resolved]
  - Joint swelling [Not Recovered/Not Resolved]
  - Abasia [Not Recovered/Not Resolved]

NARRATIVE: CASE EVENT DATE: 200802
